FAERS Safety Report 24051359 (Version 4)
Quarter: 2024Q4

REPORT INFORMATION
  Report Type: Spontaneous
  Country: US (occurrence: US)
  Receive Date: 20240704
  Receipt Date: 20241206
  Transmission Date: 20250115
  Serious: No
  Sender: SANOFI AVENTIS
  Company Number: US-SA-SAC20240627000972

PATIENT
  Age: 25 Year
  Sex: Male

DRUGS (1)
  1. DUPIXENT [Suspect]
     Active Substance: DUPILUMAB
     Indication: Eosinophilic oesophagitis
     Dosage: 300 MG, QW
     Route: 058
     Dates: start: 2024

REACTIONS (11)
  - Hordeolum [Recovered/Resolved]
  - Injection site urticaria [Unknown]
  - Injection site warmth [Unknown]
  - Ocular discomfort [Unknown]
  - Injection site irritation [Recovered/Resolved]
  - Eye pain [Unknown]
  - Eye swelling [Unknown]
  - Eye irritation [Recovered/Resolved]
  - Injection site erythema [Recovered/Resolved]
  - Injection site swelling [Unknown]
  - Injection site pruritus [Unknown]

NARRATIVE: CASE EVENT DATE: 20240101
